FAERS Safety Report 16911796 (Version 2)
Quarter: 2019Q4

REPORT INFORMATION
  Report Type: Spontaneous
  Country: BR (occurrence: BR)
  Receive Date: 20191014
  Receipt Date: 20191115
  Transmission Date: 20200122
  Serious: Yes (Death, Other)
  Sender: FDA-Public Use
  Company Number: BR-SA-2019SA280635

PATIENT
  Age: 79 Year
  Sex: Male
  Weight: 68 kg

DRUGS (26)
  1. PLAVIX [Suspect]
     Active Substance: CLOPIDOGREL BISULFATE
     Indication: ANTIPLATELET THERAPY
     Dosage: UNK UNK, QD
     Route: 048
     Dates: start: 20190724, end: 20190809
  2. METAMIZOLE [Concomitant]
     Active Substance: METAMIZOLE
     Dosage: 1 DF, QID
     Route: 065
  3. BENICAR [Concomitant]
     Active Substance: OLMESARTAN MEDOXOMIL
     Dosage: UNK UNK, QD
     Route: 065
  4. PENTOXIFYLLINE. [Interacting]
     Active Substance: PENTOXIFYLLINE
     Indication: HYPERTENSION
     Dosage: UNK UNK, Q12H
     Route: 065
     Dates: start: 20190724, end: 20190804
  5. OLMESARTAN [Concomitant]
     Active Substance: OLMESARTAN
     Indication: HYPERTENSION
     Dosage: UNK UNK, QD
     Route: 065
     Dates: start: 20190805, end: 20190809
  6. PURAN [Interacting]
     Active Substance: LEVOTHYROXINE SODIUM
     Dosage: UNK UNK, QD
     Route: 065
  7. CILOSTAZOL. [Interacting]
     Active Substance: CILOSTAZOL
     Indication: ANTICOAGULANT THERAPY
     Dosage: UNK UNK, QD
     Route: 065
     Dates: start: 20190724, end: 20190809
  8. CILOSTAZOL. [Interacting]
     Active Substance: CILOSTAZOL
     Indication: ANTIPLATELET THERAPY
  9. CLOPIDOGREL BISULFATE. [Interacting]
     Active Substance: CLOPIDOGREL BISULFATE
     Indication: ANTICOAGULANT THERAPY
     Dosage: UNK UNK, QD
     Route: 065
     Dates: start: 20190724, end: 20190729
  10. NEXIUM I.V. [Concomitant]
     Active Substance: ESOMEPRAZOLE SODIUM
     Dosage: UNK UNK, QD
     Route: 065
  11. AMLODIPINE BESYLATE. [Concomitant]
     Active Substance: AMLODIPINE BESYLATE
     Indication: HYPERTENSION
     Dosage: UNK UNK, Q12H
     Dates: start: 20190805, end: 20190805
  12. AMLODIPINE BESYLATE. [Concomitant]
     Active Substance: AMLODIPINE BESYLATE
     Dosage: UNK
     Dates: start: 20190806, end: 20190811
  13. STARLIX [Concomitant]
     Active Substance: NATEGLINIDE
     Dosage: UNK UNK, BID
     Route: 065
  14. TAMSULOSIN [Concomitant]
     Active Substance: TAMSULOSIN
     Dosage: UNK UNK, QD
     Route: 065
  15. TAMARINE [CASSIA FISTULA;CORIANDRUM SATIVUM;SENNA ALEXANDRINA;TAMARIND [Concomitant]
     Dosage: UNK UNK, BID
  16. DAFLON [DIOSMIN] [Concomitant]
     Active Substance: DIOSMIN
     Dosage: UNK UNK, QD
     Route: 065
  17. TRENTAL [Concomitant]
     Active Substance: PENTOXIFYLLINE
     Dosage: UNK UNK, BID
     Route: 065
  18. CLOPIDOGREL BISULFATE. [Interacting]
     Active Substance: CLOPIDOGREL BISULFATE
     Indication: ANTIPLATELET THERAPY
  19. LYRICA [Concomitant]
     Active Substance: PREGABALIN
     Dosage: UNK UNK, QD
     Route: 065
  20. HYDRALAZINE [Concomitant]
     Active Substance: HYDRALAZINE HYDROCHLORIDE
     Indication: HYPERTENSION
     Dosage: UNK UNK, Q8H
     Route: 065
     Dates: start: 20190805, end: 20190809
  21. HEPARIN [Interacting]
     Active Substance: HEPARIN SODIUM
     Indication: ANTICOAGULANT THERAPY
     Dosage: UNK, CONTINUOUS INFUSION PUMP
  22. AMLODIPINE BESYLATE. [Concomitant]
     Active Substance: AMLODIPINE BESYLATE
     Dosage: UNK
  23. CRESTOR [Concomitant]
     Active Substance: ROSUVASTATIN CALCIUM
     Dosage: UNK UNK, QD
     Route: 065
  24. ALLOPURINOL;BENZBROMARONE [Concomitant]
     Dosage: UNK UNK, QD
  25. HEPARIN [Interacting]
     Active Substance: HEPARIN SODIUM
     Indication: ANTIPLATELET THERAPY
  26. TYLENOL [Concomitant]
     Active Substance: ACETAMINOPHEN
     Dosage: UNK UNK, QID
     Route: 065

REACTIONS (8)
  - Hypertension [Unknown]
  - Brain death [Fatal]
  - Haemorrhage [Unknown]
  - Drug interaction [Unknown]
  - Depressed level of consciousness [Not Recovered/Not Resolved]
  - Procedural pain [Unknown]
  - Brain herniation [Not Recovered/Not Resolved]
  - Hernia [Unknown]

NARRATIVE: CASE EVENT DATE: 20190810
